FAERS Safety Report 22621792 (Version 1)
Quarter: 2023Q2

REPORT INFORMATION
  Report Type: Spontaneous
  Country: US (occurrence: US)
  Receive Date: 20230620
  Receipt Date: 20230620
  Transmission Date: 20230721
  Serious: Yes (Other)
  Sender: FDA-Public Use
  Company Number: US-BAYER-2023A085142

PATIENT

DRUGS (1)
  1. AFRIN ORIGINAL NASAL [Suspect]
     Active Substance: OXYMETAZOLINE HYDROCHLORIDE
     Dosage: UNK

REACTIONS (5)
  - Drug dependence [Unknown]
  - Incorrect product administration duration [Unknown]
  - Dyspnoea [Unknown]
  - Insomnia [Unknown]
  - Nasal congestion [None]
